FAERS Safety Report 5731038-X (Version None)
Quarter: 2008Q2

REPORT INFORMATION
  Report Type: 
  Country: None (occurrence: None)
  Receive Date: 20080507
  Receipt Date: 20080425
  Transmission Date: 20081010
  Serious: Yes (Hospitalization, Other)
  Sender: FDA-Public Use
  Company Number: DE-GENENTECH-259098

PATIENT
  Sex: Female
  Weight: 39 kg

DRUGS (10)
  1. RITUXIMAB [Suspect]
     Indication: EXTRANODAL MARGINAL ZONE B-CELL LYMPHOMA (MALT TYPE)
     Dosage: 375 MG/M2, UNK
     Route: 042
     Dates: start: 20080201
  2. RITUXIMAB [Suspect]
     Dosage: 550 MG, UNK
  3. CYCLOPHOSPHAMIDE [Suspect]
     Indication: EXTRANODAL MARGINAL ZONE B-CELL LYMPHOMA (MALT TYPE)
     Dosage: 500 MG/M2, UNK
     Route: 042
     Dates: start: 20080204
  4. DOXORUBICIN HCL [Suspect]
     Indication: EXTRANODAL MARGINAL ZONE B-CELL LYMPHOMA (MALT TYPE)
     Dosage: 50 MG/M2, UNK
     Route: 042
     Dates: start: 20080204
  5. DOXORUBICIN HCL [Suspect]
     Dosage: 70 MG, UNK
  6. VINCRISTINE [Suspect]
     Indication: EXTRANODAL MARGINAL ZONE B-CELL LYMPHOMA (MALT TYPE)
     Dosage: 1.4 MG/M2, UNK
     Route: 042
     Dates: start: 20080204
  7. VINCRISTINE [Suspect]
     Dosage: 2 MG, UNK
  8. CARDIOXANE [Concomitant]
     Indication: DRUG USE FOR UNKNOWN INDICATION
     Dosage: 1500 MG, UNK
     Route: 042
     Dates: start: 20080204, end: 20080317
  9. PREDNISOLONE [Concomitant]
     Indication: DRUG USE FOR UNKNOWN INDICATION
     Dosage: 100 MG, Q21D
     Dates: start: 20080204
  10. OCTAGAM [Concomitant]
     Indication: DRUG USE FOR UNKNOWN INDICATION
     Dates: start: 20080312

REACTIONS (5)
  - ANAEMIA [None]
  - GASTRIC HAEMORRHAGE [None]
  - SEPSIS [None]
  - THROMBOCYTOPENIA [None]
  - TUMOUR HAEMORRHAGE [None]
